FAERS Safety Report 6161152-9 (Version None)
Quarter: 2009Q2

REPORT INFORMATION
  Report Type: 
  Country: None (occurrence: None)
  Receive Date: 20090421
  Receipt Date: 20090415
  Transmission Date: 20091009
  Serious: Yes (Other)
  Sender: FDA-Public Use
  Company Number: AU-WYE-G03511209

PATIENT
  Sex: Female
  Weight: 75 kg

DRUGS (1)
  1. EFFEXOR XR [Suspect]
     Indication: DEPRESSION
     Dosage: 37.5MG ONE TIME
     Route: 048
     Dates: start: 20080729, end: 20080729

REACTIONS (7)
  - FEAR [None]
  - FEELING HOT [None]
  - HYPERHIDROSIS [None]
  - MYDRIASIS [None]
  - PARAESTHESIA [None]
  - SELF-INJURIOUS IDEATION [None]
  - VOMITING [None]
